FAERS Safety Report 24548823 (Version 7)
Quarter: 2025Q1

REPORT INFORMATION
  Report Type: Report from Study
  Country: CA (occurrence: CA)
  Receive Date: 20241025
  Receipt Date: 20250114
  Transmission Date: 20250409
  Serious: No
  Sender: ROCHE
  Company Number: CA-ROCHE-10000116209

PATIENT
  Age: 36 Year
  Sex: Female

DRUGS (2)
  1. OCREVUS [Suspect]
     Active Substance: OCRELIZUMAB
     Indication: Relapsing-remitting multiple sclerosis
     Dosage: THEN 600 MG EVERY 6 MONTHS
     Route: 042
     Dates: start: 20201213
  2. AMOXICILLIN [Concomitant]
     Active Substance: AMOXICILLIN
     Indication: Product used for unknown indication
     Route: 065

REACTIONS (3)
  - Influenza [Unknown]
  - Bronchitis [Not Recovered/Not Resolved]
  - COVID-19 [Unknown]

NARRATIVE: CASE EVENT DATE: 20241121
